FAERS Safety Report 19872613 (Version 1)
Quarter: 2021Q3

REPORT INFORMATION
  Report Type: Spontaneous
  Country: US (occurrence: US)
  Receive Date: 20210923
  Receipt Date: 20210923
  Transmission Date: 20211014
  Serious: Yes (Other)
  Sender: FDA-Public Use
  Company Number: US-ABBVIE-21K-163-4091052-00

PATIENT
  Age: 66 Year
  Sex: Female

DRUGS (1)
  1. HUMIRA [Suspect]
     Active Substance: ADALIMUMAB
     Indication: RHEUMATOID ARTHRITIS
     Route: 058
     Dates: end: 2021

REACTIONS (8)
  - Aneurysm [Unknown]
  - Herpes zoster [Recovered/Resolved]
  - Panic reaction [Unknown]
  - Pain [Unknown]
  - Brain neoplasm [Unknown]
  - Device issue [Unknown]
  - Wrong technique in product usage process [Recovered/Resolved]
  - Insomnia [Unknown]

NARRATIVE: CASE EVENT DATE: 2021
